FAERS Safety Report 7253733-6 (Version None)
Quarter: 2011Q1

REPORT INFORMATION
  Report Type: 
  Country: None (occurrence: None)
  Receive Date: 20110129
  Receipt Date: 20100129
  Transmission Date: 20110831
  Serious: No
  Sender: FDA-Public Use
  Company Number: US-ABBOTT-10P-163-0623569-00

PATIENT
  Sex: Male
  Weight: 90.8 kg

DRUGS (8)
  1. METHOTREXATE [Concomitant]
     Route: 048
     Dates: start: 20090701
  2. FOLIC ACID [Concomitant]
     Indication: VITAMIN SUPPLEMENTATION
     Dosage: BID
     Route: 048
  3. MULTIPLE VITAMINS [Concomitant]
     Indication: VITAMIN SUPPLEMENTATION
     Route: 048
  4. METHOTREXATE [Concomitant]
     Indication: ANKYLOSING SPONDYLITIS
     Dates: end: 20090701
  5. PREDNISONE [Concomitant]
     Indication: ANKYLOSING SPONDYLITIS
     Route: 048
  6. HUMIRA [Suspect]
     Indication: ANKYLOSING SPONDYLITIS
     Route: 058
     Dates: start: 20081001, end: 20090701
  7. PRED FORTE OPHTH DROPS [Concomitant]
     Indication: UVEITIS
     Dosage: LEFT EYE
     Route: 047
     Dates: start: 20080101, end: 20090101
  8. HUMIRA [Suspect]
     Dates: start: 20090701

REACTIONS (2)
  - DRUG INEFFECTIVE [None]
  - INTRAOCULAR PRESSURE INCREASED [None]
